FAERS Safety Report 9772208 (Version 1)
Quarter: 2013Q4

REPORT INFORMATION
  Report Type: Spontaneous
  Country: US (occurrence: US)
  Receive Date: 20131219
  Receipt Date: 20131219
  Transmission Date: 20140711
  Serious: No
  Sender: FDA-Public Use
  Company Number: US-TEVA-450430USA

PATIENT
  Sex: Female

DRUGS (2)
  1. NUVIGIL [Suspect]
     Indication: BIPOLAR I DISORDER
  2. MODAFINIL [Suspect]
     Indication: BIPOLAR I DISORDER

REACTIONS (3)
  - Energy increased [Unknown]
  - Insomnia [Unknown]
  - Off label use [Unknown]
